FAERS Safety Report 22136324 (Version 2)
Quarter: 2023Q1

REPORT INFORMATION
  Report Type: Spontaneous
  Country: IL (occurrence: IL)
  Receive Date: 20230324
  Receipt Date: 20230331
  Transmission Date: 20230417
  Serious: Yes (Life-Threatening)
  Sender: FDA-Public Use
  Company Number: IL-TEVA-2023-IL-2868523

PATIENT
  Age: 58 Year
  Sex: Female

DRUGS (1)
  1. PACLITAXEL [Suspect]
     Active Substance: PACLITAXEL
     Indication: Uterine leiomyosarcoma
     Dates: start: 20230115

REACTIONS (6)
  - Dyspnoea [Unknown]
  - Hot flush [Unknown]
  - Cold sweat [Unknown]
  - Communication disorder [Unknown]
  - Erythema [Unknown]
  - Chest discomfort [Unknown]

NARRATIVE: CASE EVENT DATE: 20230206
